FAERS Safety Report 14583040 (Version 1)
Quarter: 2018Q1

REPORT INFORMATION
  Report Type: Spontaneous
  Country: US (occurrence: US)
  Receive Date: 20180228
  Receipt Date: 20180228
  Transmission Date: 20180509
  Serious: Yes (Other)
  Sender: FDA-Public Use
  Company Number: None

PATIENT
  Age: 13 Year
  Sex: Male
  Weight: 34.02 kg

DRUGS (1)
  1. TAMIFLU [Suspect]
     Active Substance: OSELTAMIVIR PHOSPHATE
     Indication: INFLUENZA
     Route: 048
     Dates: start: 20180213, end: 20180214

REACTIONS (6)
  - Psychiatric symptom [None]
  - Somnambulism [None]
  - Fear [None]
  - Hallucination [None]
  - Sleep terror [None]
  - Panic reaction [None]

NARRATIVE: CASE EVENT DATE: 20180213
